FAERS Safety Report 14317877 (Version 1)
Quarter: 2017Q4

REPORT INFORMATION
  Report Type: Spontaneous
  Country: US (occurrence: US)
  Receive Date: 20171221
  Receipt Date: 20171221
  Transmission Date: 20180321
  Serious: Yes (Life-Threatening, Disabling)
  Sender: FDA-Public Use
  Company Number: None

PATIENT
  Age: 52 Year
  Sex: Female
  Weight: 51.75 kg

DRUGS (5)
  1. CAL MAG [Concomitant]
  2. VITAMIN D3 [Concomitant]
     Active Substance: CHOLECALCIFEROL
  3. GEODON [Suspect]
     Active Substance: ZIPRASIDONE HYDROCHLORIDE\ZIPRASIDONE MESYLATE
     Indication: BIPOLAR DISORDER
     Dosage: ?          QUANTITY:1 CAPSULE(S);?
     Route: 048
     Dates: start: 20111115, end: 20130215
  4. PANTOPRAZAL [Concomitant]
  5. ALOE JUICE [Concomitant]

REACTIONS (3)
  - Hepatic steatosis [None]
  - Eye disorder [None]
  - Cataract operation [None]
